FAERS Safety Report 9148036 (Version 1)
Quarter: 2013Q1

REPORT INFORMATION
  Report Type: Spontaneous
  Country: CO (occurrence: CO)
  Receive Date: 20130308
  Receipt Date: 20130308
  Transmission Date: 20140127
  Serious: Yes (Hospitalization, Other)
  Sender: FDA-Public Use
  Company Number: CO-AMGEN-COLSP2012036660

PATIENT
  Age: 48 Year
  Sex: Female

DRUGS (3)
  1. ENBREL [Suspect]
     Indication: RHEUMATOID ARTHRITIS
     Dosage: 50 MG, WEEKLY
     Route: 058
     Dates: start: 201101, end: 20121226
  2. METHOTREXATE [Concomitant]
     Indication: RHEUMATOID ARTHRITIS
     Dosage: 3 TABLET OF 2.5MG ON SATURDAYS AND 3 TABLETS OF 2.5MG ON SUNDAYS
     Route: 048
     Dates: start: 201201, end: 20121217
  3. PREDNISOLONE [Concomitant]
     Indication: RHEUMATOID ARTHRITIS
     Dosage: 5 MG, 2 TABLET DAILY
     Route: 048
     Dates: start: 201101

REACTIONS (7)
  - Rheumatoid arthritis [Unknown]
  - Weight decreased [Unknown]
  - Decreased appetite [Unknown]
  - Bronchitis [Recovering/Resolving]
  - Urinary tract infection [Recovered/Resolved]
  - Tuberculosis [Not Recovered/Not Resolved]
  - Influenza [Recovered/Resolved]
